FAERS Safety Report 7867702-6 (Version None)
Quarter: 2011Q4

REPORT INFORMATION
  Report Type: 
  Country: None (occurrence: None)
  Receive Date: 20111028
  Receipt Date: 20111024
  Transmission Date: 20120403
  Serious: Yes (Hospitalization)
  Sender: FDA-Public Use
  Company Number: DE-TEVA-306504GER

PATIENT
  Age: 74 Year
  Sex: Female

DRUGS (3)
  1. LEVOTHYROXINE SODIUM [Suspect]
     Dosage: 350 MICROGRAM;
     Route: 048
  2. TRANYLCYPROMINE SULFATE [Interacting]
     Indication: DEPRESSION
     Dosage: 60 MILLIGRAM;
  3. LEVOTHYROXINE SODIUM [Interacting]
     Dosage: 300 MICROGRAM;
     Route: 048

REACTIONS (5)
  - DRUG INTERACTION [None]
  - NERVOUSNESS [None]
  - AGITATION [None]
  - MYOCARDIAL INFARCTION [None]
  - HYPERHIDROSIS [None]
